FAERS Safety Report 5477073-0 (Version None)
Quarter: 2007Q4

REPORT INFORMATION
  Report Type: 
  Country: None (occurrence: None)
  Receive Date: 20071002
  Receipt Date: 20071002
  Transmission Date: 20080405
  Serious: Yes (Other)
  Sender: FDA-Public Use
  Company Number: None

PATIENT
  Sex: Female
  Weight: 129.7287 kg

DRUGS (1)
  1. CLINDAMYCIN 300 MG CAP GENERIC [Suspect]
     Indication: TOOTH ABSCESS
     Dosage: 300 MG CAPSULE PO
     Route: 048
     Dates: start: 20070912

REACTIONS (5)
  - BLISTER [None]
  - DRUG HYPERSENSITIVITY [None]
  - PHARYNGEAL OEDEMA [None]
  - RASH [None]
  - THROAT TIGHTNESS [None]
